FAERS Safety Report 6391884-9 (Version None)
Quarter: 2009Q4

REPORT INFORMATION
  Report Type: 
  Country: None (occurrence: None)
  Receive Date: 20091007
  Receipt Date: 20090925
  Transmission Date: 20100525
  Serious: Yes (Other)
  Sender: FDA-Public Use
  Company Number: TR-ABBOTT-09P-161-0575317-00

PATIENT
  Age: 22 Year
  Sex: Male

DRUGS (5)
  1. WARFARIN [Suspect]
     Indication: AORTIC VALVE REPLACEMENT
     Dosage: NOT REPORTED
  2. WARFARIN [Suspect]
     Dosage: NOT REPORTED
  3. BOTULINUM TOXIN TYPE A [Suspect]
     Indication: HYPERTONIC BLADDER
     Dosage: AT 30 DETRUSOR MUSCLE SITES
  4. OXYBUTYNIN CHLORIDE [Concomitant]
     Indication: URINARY INCONTINENCE
  5. TOLTERODINE TARTRATE [Concomitant]
     Indication: URINARY INCONTINENCE

REACTIONS (1)
  - HAEMATURIA [None]
